FAERS Safety Report 4619408-4 (Version None)
Quarter: 2005Q2

REPORT INFORMATION
  Report Type: 
  Country: None (occurrence: None)
  Receive Date: 20050325
  Receipt Date: 20020509
  Transmission Date: 20051028
  Serious: Yes (Death, Hospitalization)
  Sender: FDA-Public Use
  Company Number: 64886-2002-064

PATIENT
  Age: 82 Year
  Sex: Male
  Weight: 73.9363 kg

DRUGS (5)
  1. METHOTREXATE [Suspect]
     Indication: NON-HODGKIN'S LYMPHOMA
     Dosage: 500 MG/M2 IV
     Route: 042
     Dates: start: 20020501
  2. CYTOXAN [Concomitant]
  3. ADRIAMYCIN PFS [Concomitant]
  4. VINCRISTINE [Concomitant]
  5. BLEOMYCIN [Concomitant]

REACTIONS (4)
  - MUCOSAL INFLAMMATION [None]
  - PANCYTOPENIA [None]
  - RASH FOLLICULAR [None]
  - RENAL FAILURE [None]
